FAERS Safety Report 24567261 (Version 1)
Quarter: 2024Q4

REPORT INFORMATION
  Report Type: Other
  Country: US (occurrence: US)
  Receive Date: 20241030
  Receipt Date: 20241030
  Transmission Date: 20250115
  Serious: No
  Sender: MADRIGAL PHARMACEUTICALS
  Company Number: US-MADRIGAL PHARMACEUTICALS, INC-2024REZ2567

PATIENT

DRUGS (2)
  1. REZDIFFRA [Suspect]
     Active Substance: RESMETIROM
     Indication: Metabolic dysfunction-associated steatohepatitis
     Dosage: 100 MILLIGRAM, 2X/DAY
     Route: 048
     Dates: start: 202405
  2. TYLENOL [Suspect]
     Active Substance: ACETAMINOPHEN
     Indication: Joint injury
     Dosage: UNK
     Dates: start: 2024, end: 2024

REACTIONS (6)
  - Liver function test abnormal [Recovered/Resolved]
  - Joint injury [Unknown]
  - Weight decreased [Unknown]
  - Diarrhoea [Recovering/Resolving]
  - Inappropriate schedule of product administration [Unknown]
  - Accidental overdose [Unknown]

NARRATIVE: CASE EVENT DATE: 20240101
